FAERS Safety Report 11568539 (Version 1)
Quarter: 2015Q3

REPORT INFORMATION
  Report Type: Spontaneous
  Country: US (occurrence: US)
  Receive Date: 20150929
  Receipt Date: 20150929
  Transmission Date: 20151125
  Serious: No
  Sender: FDA-Public Use
  Company Number: US-ELI_LILLY_AND_COMPANY-US201509001924

PATIENT
  Sex: Male

DRUGS (3)
  1. FLOMAX [Concomitant]
     Active Substance: TAMSULOSIN HYDROCHLORIDE
     Indication: PROSTATIC DISORDER
     Dosage: UNK, UNKNOWN
     Route: 065
  2. ENAFRIL [Concomitant]
  3. CIALIS [Suspect]
     Active Substance: TADALAFIL
     Indication: BLOOD PRESSURE SYSTOLIC INCREASED
     Dosage: 40 MG, QD
     Route: 065

REACTIONS (3)
  - Prostatic disorder [Unknown]
  - Off label use [Unknown]
  - Blood pressure systolic decreased [Unknown]
